FAERS Safety Report 5347971-7 (Version None)
Quarter: 2007Q2

REPORT INFORMATION
  Report Type: 
  Country: None (occurrence: None)
  Receive Date: 20070606
  Receipt Date: 20070525
  Transmission Date: 20071010
  Serious: Yes (Other)
  Sender: FDA-Public Use
  Company Number: JP-SANOFI-SYNTHELABO-A01200704581

PATIENT
  Age: 71 Year
  Sex: Male
  Weight: 61 kg

DRUGS (13)
  1. NOVORAPID [Concomitant]
     Route: 058
     Dates: start: 20060106
  2. MAGMITT [Concomitant]
     Indication: CONSTIPATION
     Route: 048
     Dates: start: 20051001, end: 20051102
  3. LENDORMIN [Concomitant]
     Indication: INSOMNIA
     Route: 048
     Dates: start: 20051001
  4. DIOVAN [Concomitant]
     Indication: HYPERTENSION
     Route: 048
     Dates: start: 20051015
  5. DEXAMETHASONE SODIUM PHOSPHATE [Concomitant]
     Indication: PREMEDICATION
     Route: 041
     Dates: start: 20070110, end: 20070110
  6. CALCICOL [Concomitant]
     Indication: PREMEDICATION
     Route: 041
     Dates: start: 20070110, end: 20070110
  7. DIA-KENCHU-TO [Concomitant]
     Indication: ABDOMINAL DISTENSION
     Route: 048
     Dates: start: 20061117
  8. ISOVORIN [Concomitant]
     Route: 041
     Dates: start: 20070110, end: 20070110
  9. FLIVAS [Concomitant]
     Indication: POLYURIA
     Route: 048
     Dates: start: 20060426
  10. MAGNESOL [Concomitant]
     Indication: PREMEDICATION
     Route: 041
     Dates: start: 20070110, end: 20070110
  11. FLUOROURACIL [Suspect]
     Indication: RECTAL CANCER
     Dosage: 620 MG/BODY=400 MG/M2 IN BOLUS THEN 3720 MG/BODY=2400 MG/M2 AS INFUSION
     Route: 041
     Dates: start: 20070110, end: 20070110
  12. KYTRIL [Concomitant]
     Indication: PREMEDICATION
     Route: 041
     Dates: start: 20070110, end: 20070110
  13. OXALIPLATIN [Suspect]
     Indication: RECTAL CANCER
     Route: 041
     Dates: start: 20070110, end: 20070110

REACTIONS (2)
  - CONVULSIONS LOCAL [None]
  - SUBDURAL HAEMATOMA [None]
